FAERS Safety Report 8632975 (Version 4)
Quarter: 2012Q4

REPORT INFORMATION
  Report Type: Spontaneous
  Country: US (occurrence: None)
  Receive Date: 20120612
  Receipt Date: 20120925
  Transmission Date: 20130627
  Serious: Yes (Hospitalization)
  Sender: FDA-Public Use
  Company Number: CIO12009257

PATIENT
  Age: 52 Year
  Sex: Female
  Weight: 66.7 kg

DRUGS (1)
  1. CETYLPYRIDINIUM CHLORIDE [Suspect]
     Dosage: 1 APPLIC, INTRAORAL
     Dates: start: 201105, end: 20120525

REACTIONS (17)
  - TONGUE PARALYSIS [None]
  - TREMOR [None]
  - SWOLLEN TONGUE [None]
  - GLOSSITIS [None]
  - TONGUE DISCOLOURATION [None]
  - WEIGHT DECREASED [None]
  - GLOSSODYNIA [None]
  - TONGUE COATED [None]
  - TONGUE DISORDER [None]
  - ODYNOPHAGIA [None]
  - COUGH [None]
  - ORAL PAIN [None]
  - FACIAL PAIN [None]
  - PAIN IN JAW [None]
  - DYSPNOEA [None]
  - HYPOAESTHESIA ORAL [None]
  - DRUG HYPERSENSITIVITY [None]
